FAERS Safety Report 7493142-8 (Version None)
Quarter: 2011Q2

REPORT INFORMATION
  Report Type: 
  Country: None (occurrence: None)
  Receive Date: 20110519
  Receipt Date: 20110519
  Transmission Date: 20111010
  Serious: Yes (Hospitalization, Disabling)
  Sender: FDA-Public Use
  Company Number: None

PATIENT
  Sex: Female
  Weight: 65.7716 kg

DRUGS (2)
  1. BONIVA [Suspect]
     Dosage: 150MG ONCE A MONTH PO
     Route: 048
     Dates: start: 20081120, end: 20110315
  2. ACTONEL [Suspect]
     Indication: OSTEOPENIA
     Dosage: 35MG ONCE A WEEK PO
     Route: 048
     Dates: start: 19991020, end: 20081015

REACTIONS (2)
  - PATHOLOGICAL FRACTURE [None]
  - FEMUR FRACTURE [None]
